FAERS Safety Report 5358253-1 (Version None)
Quarter: 2007Q2

REPORT INFORMATION
  Report Type: 
  Country: None (occurrence: None)
  Receive Date: 20070613
  Receipt Date: 20070613
  Transmission Date: 20071010
  Serious: No
  Sender: FDA-Public Use
  Company Number: None

PATIENT
  Sex: Female
  Weight: 110.4962 kg

DRUGS (2)
  1. COLESTID [Suspect]
     Indication: BLOOD CHOLESTEROL DECREASED
     Dosage: 5 GM ONCE A DAY PO
     Route: 048
     Dates: start: 20020101
  2. COLESTID [Suspect]
     Indication: CHOLECYSTECTOMY
     Dosage: 5 GM ONCE A DAY PO
     Route: 048
     Dates: start: 20020101

REACTIONS (2)
  - PHARMACEUTICAL PRODUCT COMPLAINT [None]
  - PHARYNGEAL OEDEMA [None]
